FAERS Safety Report 5843112-8 (Version None)
Quarter: 2008Q3

REPORT INFORMATION
  Report Type: 
  Country: None (occurrence: None)
  Receive Date: 20080813
  Receipt Date: 20080806
  Transmission Date: 20090109
  Serious: Yes (Hospitalization)
  Sender: FDA-Public Use
  Company Number: AT-BAYER-200819594GPV

PATIENT
  Age: 23 Year
  Sex: Female

DRUGS (1)
  1. MIRENA [Suspect]
     Indication: DRUG USE FOR UNKNOWN INDICATION
     Route: 015
     Dates: start: 20071002, end: 20071201

REACTIONS (5)
  - ABDOMINAL PAIN [None]
  - CARDIOVASCULAR DISORDER [None]
  - LOSS OF CONSCIOUSNESS [None]
  - MENOMETRORRHAGIA [None]
  - PAIN [None]
